FAERS Safety Report 16073687 (Version 1)
Quarter: 2019Q1

REPORT INFORMATION
  Report Type: Report from Study
  Country: US (occurrence: US)
  Receive Date: 20190314
  Receipt Date: 20190314
  Transmission Date: 20190418
  Serious: Yes (Hospitalization, Other)
  Sender: FDA-Public Use
  Company Number: US-ASTRAZENECA-2013SE09899

PATIENT
  Age: 55 Year
  Sex: Male
  Weight: 65.8 kg

DRUGS (5)
  1. LEVOTHYROXINE. [Concomitant]
     Active Substance: LEVOTHYROXINE
  2. BRILINTA [Suspect]
     Active Substance: TICAGRELOR
     Indication: STENT PLACEMENT
     Route: 048
     Dates: start: 201211, end: 201405
  3. SYMBICORT [Suspect]
     Active Substance: BUDESONIDE\FORMOTEROL FUMARATE DIHYDRATE
     Route: 055
  4. ASPIRIN. [Concomitant]
     Active Substance: ASPIRIN
  5. DIGOXIN. [Concomitant]
     Active Substance: DIGOXIN

REACTIONS (14)
  - Vascular occlusion [Recovering/Resolving]
  - Hypertension [Unknown]
  - Bronchitis chronic [Unknown]
  - Haemoglobin increased [Unknown]
  - Hepatitis C [Unknown]
  - Chest discomfort [Unknown]
  - Chronic obstructive pulmonary disease [Unknown]
  - Dyspepsia [Unknown]
  - Dyspnoea [Unknown]
  - Heart rate decreased [Not Recovered/Not Resolved]
  - Blood iron decreased [Unknown]
  - Viral infection [Unknown]
  - Haematocrit increased [Unknown]
  - Lung disorder [Unknown]

NARRATIVE: CASE EVENT DATE: 201903
